FAERS Safety Report 6980469-9 (Version None)
Quarter: 2010Q3

REPORT INFORMATION
  Report Type: 
  Country: None (occurrence: None)
  Receive Date: 20100914
  Receipt Date: 20100902
  Transmission Date: 20110219
  Serious: Yes (Other)
  Sender: FDA-Public Use
  Company Number: US-SANOFI-AVENTIS-2010SA053888

PATIENT
  Sex: Male

DRUGS (2)
  1. PLAVIX [Suspect]
  2. PLAVIX [Suspect]

REACTIONS (4)
  - ARTHROPATHY [None]
  - CARDIAC DISORDER [None]
  - DIZZINESS [None]
  - SURGERY [None]
